FAERS Safety Report 10299145 (Version 1)
Quarter: 2014Q3

REPORT INFORMATION
  Report Type: Spontaneous
  Country: CL (occurrence: CL)
  Receive Date: 20140711
  Receipt Date: 20140711
  Transmission Date: 20150326
  Serious: Yes (Other)
  Sender: FDA-Public Use
  Company Number: CL-PFIZER INC-2014189284

PATIENT
  Age: 82 Year
  Sex: Female

DRUGS (5)
  1. XALATAN [Suspect]
     Active Substance: LATANOPROST
     Dosage: 1 GTT, 1X/DAY
     Route: 047
     Dates: start: 2009, end: 201312
  2. CLONEX [Concomitant]
     Dosage: UNK
  3. CADUET [Suspect]
     Active Substance: AMLODIPINE BESYLATE\ATORVASTATIN CALCIUM
     Indication: CARDIAC DISORDER
     Dosage: [AMLODIPINE BESILATE 5MG/ ATORVASTATIN CALCIUM 10 MG], 1 DF, 1X/DAY
     Dates: start: 1994
  4. INDAPRESS [Concomitant]
     Dosage: UNK
  5. ASPIRIN ^BAYER^ [Concomitant]
     Active Substance: ASPIRIN
     Dosage: 100 MG, UNK

REACTIONS (3)
  - Cataract [Unknown]
  - Hernia [Unknown]
  - Mental disorder [Unknown]

NARRATIVE: CASE EVENT DATE: 201312
